FAERS Safety Report 4764654-2 (Version None)
Quarter: 2005Q3

REPORT INFORMATION
  Report Type: 
  Country: None (occurrence: None)
  Receive Date: 20050909
  Receipt Date: 20050903
  Transmission Date: 20060218
  Serious: Yes (Other)
  Sender: FDA-Public Use
  Company Number: GB-GLAXOSMITHKLINE-B0392707A

PATIENT
  Age: 34 Year
  Sex: Female

DRUGS (4)
  1. MALARONE [Suspect]
     Indication: MALARIA PROPHYLAXIS
     Route: 048
  2. CLARITIN [Concomitant]
     Indication: SEASONAL ALLERGY
     Dosage: 1UNIT PER DAY
     Route: 048
  3. VENTOLIN [Concomitant]
     Indication: ASTHMA
     Route: 048
  4. BUDESONIDE [Concomitant]
     Indication: ASTHMA
     Dosage: 20MCG TWICE PER DAY
     Route: 048

REACTIONS (3)
  - ABNORMAL DREAMS [None]
  - MOUTH ULCERATION [None]
  - SLEEP DISORDER [None]
